FAERS Safety Report 7824550-0 (Version None)
Quarter: 2011Q4

REPORT INFORMATION
  Report Type: 
  Country: None (occurrence: None)
  Receive Date: 20111019
  Receipt Date: 20111007
  Transmission Date: 20120403
  Serious: Yes (Death)
  Sender: FDA-Public Use
  Company Number: CA-ELI_LILLY_AND_COMPANY-CA201110001638

PATIENT
  Sex: Female

DRUGS (18)
  1. PIPORTIL [Concomitant]
  2. BENZTROPINE MESYLATE [Concomitant]
  3. ASPIRIN [Concomitant]
  4. DOMPERIDONE [Concomitant]
  5. ZYPREXA [Suspect]
     Dosage: 5 MG, EACH MORNING
  6. SEROQUEL [Concomitant]
  7. DEXAMETHASONE [Concomitant]
  8. ZYPREXA [Suspect]
     Indication: SCHIZOPHRENIA
     Dosage: 10 MG, QD
     Dates: start: 20000505
  9. ZYPREXA [Suspect]
     Dosage: 15 MG, QD
  10. ALTACE [Concomitant]
  11. PROCHLORPERAZINE [Concomitant]
  12. ZOCOR [Concomitant]
  13. DIVALPROEX SODIUM [Concomitant]
  14. CITALOPRAM [Concomitant]
  15. ZYPREXA [Suspect]
     Dosage: 20 MG, QD
  16. ZYPREXA [Suspect]
     Dosage: 2.5 MG, UNK
  17. LORAZEPAM [Concomitant]
  18. PERPHENAZINE [Concomitant]

REACTIONS (5)
  - WHITE BLOOD CELL COUNT DECREASED [None]
  - PROTEINURIA [None]
  - CARDIAC MURMUR [None]
  - DIABETES MELLITUS [None]
  - DEATH [None]
